FAERS Safety Report 14220908 (Version 4)
Quarter: 2018Q1

REPORT INFORMATION
  Report Type: Report from Study
  Country: US (occurrence: US)
  Receive Date: 20171124
  Receipt Date: 20180227
  Transmission Date: 20180508
  Serious: Yes (Disabling, Other)
  Sender: FDA-Public Use
  Company Number: US-ASTRAZENECA-2017SF04971

PATIENT
  Age: 21960 Day
  Sex: Female

DRUGS (3)
  1. PRILOSEC [Interacting]
     Active Substance: OMEPRAZOLE MAGNESIUM
     Indication: ABDOMINAL PAIN UPPER
     Route: 048
  2. LYNPARZA [Interacting]
     Active Substance: OLAPARIB
     Indication: OVARIAN CANCER
     Route: 048
  3. LYNPARZA [Suspect]
     Active Substance: OLAPARIB
     Indication: OVARIAN CANCER
     Route: 048

REACTIONS (20)
  - Dysuria [Unknown]
  - Metastases to liver [Unknown]
  - Malaise [Unknown]
  - Constipation [Not Recovered/Not Resolved]
  - Fatigue [Not Recovered/Not Resolved]
  - Product use in unapproved indication [Unknown]
  - Nausea [Not Recovered/Not Resolved]
  - Vomiting [Unknown]
  - Pulmonary thrombosis [Unknown]
  - Therapeutic product ineffective for unapproved indication [Unknown]
  - Dehydration [Not Recovered/Not Resolved]
  - Depression [Not Recovered/Not Resolved]
  - Off label use [Unknown]
  - Drug interaction [Unknown]
  - Malaise [Not Recovered/Not Resolved]
  - Abdominal pain upper [Not Recovered/Not Resolved]
  - Breast disorder female [Unknown]
  - Abdominal discomfort [Unknown]
  - Feeling abnormal [Not Recovered/Not Resolved]
  - Dysgeusia [Unknown]

NARRATIVE: CASE EVENT DATE: 20171001
